FAERS Safety Report 7713433-2 (Version None)
Quarter: 2011Q3

REPORT INFORMATION
  Report Type: 
  Country: None (occurrence: None)
  Receive Date: 20110826
  Receipt Date: 20110812
  Transmission Date: 20111222
  Serious: Yes (Other)
  Sender: FDA-Public Use
  Company Number: US-BAYER-2011-063790

PATIENT
  Age: 82 Year
  Sex: Female
  Weight: 59.18 kg

DRUGS (8)
  1. ACETYLSALICYLIC ACID SRT [Suspect]
     Dosage: 81 MG, QD
  2. CRESTOR [Concomitant]
     Dosage: UNK
     Dates: start: 20100101
  3. NEXIUM [Concomitant]
     Dosage: UNK
  4. PLAVIX [Suspect]
     Indication: ANGIOGRAM
  5. COREG [Concomitant]
     Dosage: UNK
  6. PLAVIX [Suspect]
     Indication: STENT PLACEMENT
     Dosage: 75 MG, QD
     Route: 048
     Dates: start: 20110601
  7. ATACAND [Concomitant]
     Dosage: UNK
  8. SPIRONOLACTONE [Concomitant]
     Dosage: UNK
     Dates: start: 20110531, end: 20110601

REACTIONS (9)
  - HYPOTENSION [None]
  - EPISTAXIS [None]
  - ASTHENIA [None]
  - COLITIS [None]
  - HEADACHE [None]
  - CONSTIPATION [None]
  - ABDOMINAL PAIN [None]
  - DECREASED APPETITE [None]
  - DIARRHOEA [None]
